FAERS Safety Report 12598964 (Version 1)
Quarter: 2016Q3

REPORT INFORMATION
  Report Type: Spontaneous
  Country: FI (occurrence: FI)
  Receive Date: 20160727
  Receipt Date: 20160727
  Transmission Date: 20161109
  Serious: Yes (Other)
  Sender: FDA-Public Use
  Company Number: FI-PFIZER INC-2016359726

PATIENT
  Age: 19 Year
  Sex: Male

DRUGS (16)
  1. AVELOX [Concomitant]
     Active Substance: MOXIFLOXACIN HYDROCHLORIDE
     Dosage: UNK
     Dates: start: 20160627
  2. CYCLOSERINE. [Suspect]
     Active Substance: CYCLOSERINE
     Indication: TUBERCULOSIS
     Dosage: 500 MG, DAILY
     Route: 048
     Dates: start: 20151111, end: 20160108
  3. NIVESTIM [Concomitant]
     Active Substance: FILGRASTIM
     Indication: NEUTROPENIA
     Dosage: 0.2 MG, WEEKLY AS NEEDED
     Route: 058
  4. TRECATOR [Suspect]
     Active Substance: ETHIONAMIDE
     Indication: TUBERCULOSIS
     Dosage: 750 MG, DAILY
     Route: 048
     Dates: start: 20151111, end: 20160609
  5. CYCLOSERINE. [Suspect]
     Active Substance: CYCLOSERINE
     Dosage: 750 MG, 1X/DAY
     Dates: start: 20160209, end: 20160627
  6. CYCLOSERINE. [Suspect]
     Active Substance: CYCLOSERINE
     Dosage: 500 MG, 1X/DAY
     Dates: start: 20160628
  7. ZYVOXID [Concomitant]
     Active Substance: LINEZOLID
     Indication: TUBERCULOSIS
     Dosage: 300 MG, DAILY
     Route: 048
     Dates: start: 20151111, end: 20160127
  8. ONDANSETRON [Concomitant]
     Active Substance: ONDANSETRON
     Dosage: 8 MG, 1-2X/DAY AS NEEDED
     Route: 048
  9. AMIKIN [Suspect]
     Active Substance: AMIKACIN SULFATE
     Indication: TUBERCULOSIS
     Dosage: 750 MG, DAILY
     Route: 042
     Dates: start: 20151111, end: 20160205
  10. AMIKIN [Suspect]
     Active Substance: AMIKACIN SULFATE
     Dosage: 750 MG DAILY 5 TIMES WEEKLY (FROM MONDAY TO FRIDAY)
     Dates: start: 20160208, end: 20160529
  11. SOMAC [Concomitant]
     Active Substance: PANTOPRAZOLE SODIUM
     Dosage: 40 MG, DAILY
     Route: 048
     Dates: start: 20151111
  12. ZYVOXID [Concomitant]
     Active Substance: LINEZOLID
     Dosage: 600 MG, 1X/DAY
     Dates: start: 20160128
  13. VITA-B6 [Concomitant]
     Dosage: 100 MG, DAILY
     Dates: start: 20151111, end: 20160626
  14. AVELOX [Concomitant]
     Active Substance: MOXIFLOXACIN HYDROCHLORIDE
     Dosage: 400 MG, DAILY
     Dates: start: 20151111, end: 20160530
  15. AMIKIN [Suspect]
     Active Substance: AMIKACIN SULFATE
     Dosage: 1000 MG DAILY THREE TIMES A WEEK
     Dates: start: 20160530
  16. VITA-B6 [Concomitant]
     Dosage: 150 MG, 1X/DAY
     Dates: start: 20160627

REACTIONS (1)
  - Polyneuropathy [Not Recovered/Not Resolved]

NARRATIVE: CASE EVENT DATE: 20160512
